FAERS Safety Report 8353241-5 (Version None)
Quarter: 2012Q2

REPORT INFORMATION
  Report Type: 
  Country: None (occurrence: None)
  Receive Date: 20120511
  Receipt Date: 20120502
  Transmission Date: 20120825
  Serious: Yes (Other)
  Sender: FDA-Public Use
  Company Number: AU-JNJFOC-20120502473

PATIENT
  Age: 67 Year
  Sex: Male

DRUGS (1)
  1. SPORANOX [Suspect]
     Indication: FUNGAL INFECTION
     Route: 065

REACTIONS (3)
  - LIVER INJURY [None]
  - RENAL INJURY [None]
  - SPLEEN DISORDER [None]
